FAERS Safety Report 20065608 (Version 4)
Quarter: 2022Q1

REPORT INFORMATION
  Report Type: Report from Study
  Country: US (occurrence: US)
  Receive Date: 20211113
  Receipt Date: 20220214
  Transmission Date: 20220423
  Serious: Yes (Life-Threatening, Other)
  Sender: FDA-Public Use
  Company Number: US-NOVARTISPH-NVSC2021US256939

PATIENT
  Sex: Female

DRUGS (1)
  1. TABRECTA [Suspect]
     Active Substance: CAPMATINIB
     Indication: Product used for unknown indication
     Dosage: UNK (VIA MOUTH)
     Route: 048
     Dates: start: 20211005

REACTIONS (10)
  - Loss of consciousness [Unknown]
  - Dizziness [Unknown]
  - Myalgia [Unknown]
  - Eye contusion [Unknown]
  - Contusion [Unknown]
  - Musculoskeletal discomfort [Unknown]
  - Pain [Unknown]
  - Joint swelling [Unknown]
  - Constipation [Unknown]
  - Peripheral swelling [Unknown]
